FAERS Safety Report 4881283-0 (Version None)
Quarter: 2005Q4

REPORT INFORMATION
  Report Type: 
  Country: None (occurrence: None)
  Receive Date: 20051212
  Receipt Date: 20041022
  Transmission Date: 20060501
  Serious: Yes (Hospitalization)
  Sender: FDA-Public Use
  Company Number: 04P-163-0278513-00

PATIENT
  Age: 61 Year
  Sex: Female

DRUGS (4)
  1. TARKA [Suspect]
     Indication: BLOOD PRESSURE INCREASED
     Dosage: 1 IN 1 D, PER ORAL
     Route: 048
     Dates: start: 20031201, end: 20041001
  2. TARKA [Suspect]
     Indication: BLOOD PRESSURE INCREASED
     Dosage: 1 IN 1 D, PER ORAL
     Route: 048
     Dates: start: 20041016, end: 20041016
  3. PAROXETINE HYDROCHLORIDE [Concomitant]
  4. ESTROGENS CONJUGATED [Concomitant]

REACTIONS (2)
  - ANGIONEUROTIC OEDEMA [None]
  - HYPERSENSITIVITY [None]
